FAERS Safety Report 16859950 (Version 1)
Quarter: 2019Q3

REPORT INFORMATION
  Report Type: Report from Study
  Country: US (occurrence: US)
  Receive Date: 20190927
  Receipt Date: 20190927
  Transmission Date: 20191005
  Serious: Yes (Hospitalization, Other)
  Sender: FDA-Public Use
  Company Number: US-ROCHE-2158271

PATIENT
  Age: 60 Year
  Sex: Female

DRUGS (19)
  1. OCREVUS [Suspect]
     Active Substance: OCRELIZUMAB
     Route: 065
     Dates: start: 20180820
  2. DILTIAZEM HCL [Concomitant]
     Active Substance: DILTIAZEM HYDROCHLORIDE
     Route: 048
  3. VITAMIN D2 [Concomitant]
     Active Substance: ERGOCALCIFEROL
     Route: 065
  4. CARDIZEM [Concomitant]
     Active Substance: DILTIAZEM HYDROCHLORIDE
     Route: 048
  5. RITUXAN [Suspect]
     Active Substance: RITUXIMAB
     Indication: PRODUCT USED FOR UNKNOWN INDICATION
     Dosage: ONGOING: UNKNOWN
     Route: 042
     Dates: start: 2015, end: 201712
  6. XANAX [Concomitant]
     Active Substance: ALPRAZOLAM
     Indication: ANXIETY
  7. BIOTIN [Concomitant]
     Active Substance: BIOTIN
     Route: 048
  8. MODAFINIL. [Concomitant]
     Active Substance: MODAFINIL
     Route: 065
  9. XANAX [Concomitant]
     Active Substance: ALPRAZOLAM
     Indication: DEPRESSION
     Route: 048
  10. CELLCEPT [Suspect]
     Active Substance: MYCOPHENOLATE MOFETIL\MYCOPHENOLATE MOFETIL HYDROCHLORIDE
     Indication: RELAPSING MULTIPLE SCLEROSIS
     Route: 065
     Dates: start: 2011
  11. ALPRAZOLAM. [Concomitant]
     Active Substance: ALPRAZOLAM
     Route: 048
  12. NATALIZUMAB [Suspect]
     Active Substance: NATALIZUMAB
     Indication: PRODUCT USED FOR UNKNOWN INDICATION
     Route: 048
  13. OCREVUS [Suspect]
     Active Substance: OCRELIZUMAB
     Route: 065
     Dates: start: 20190206
  14. ASPIRIN [ACETYLSALICYLIC ACID] [Concomitant]
     Active Substance: ASPIRIN
     Route: 048
  15. SERTRALINE [Concomitant]
     Active Substance: SERTRALINE HYDROCHLORIDE
     Route: 048
  16. FISH OIL [Concomitant]
     Active Substance: FISH OIL
     Dosage: 1000 IU/ML
     Route: 048
  17. VITAMIN D3 [Concomitant]
     Active Substance: CHOLECALCIFEROL
     Dosage: 2000 IU/ML
     Route: 048
  18. TRAZODONE [Concomitant]
     Active Substance: TRAZODONE HYDROCHLORIDE
     Dosage: 1-3HRS PRN
     Route: 065
  19. OCREVUS [Suspect]
     Active Substance: OCRELIZUMAB
     Indication: RELAPSING MULTIPLE SCLEROSIS
     Route: 065
     Dates: start: 20180806

REACTIONS (23)
  - Musculoskeletal chest pain [Unknown]
  - Herpes zoster [Unknown]
  - Facial paralysis [Unknown]
  - Hypoacusis [Unknown]
  - Weight decreased [Unknown]
  - Oral mucosal eruption [Unknown]
  - Eye disorder [Not Recovered/Not Resolved]
  - Hyperaesthesia [Unknown]
  - Hypoaesthesia [Unknown]
  - Pressure of speech [Unknown]
  - Paraesthesia [Unknown]
  - Heart rate increased [Unknown]
  - Atrial fibrillation [Unknown]
  - Mental disorder [Unknown]
  - Acne [Unknown]
  - Intentional product use issue [Unknown]
  - Off label use [Unknown]
  - Memory impairment [Unknown]
  - Cerebral disorder [Unknown]
  - Flatulence [Not Recovered/Not Resolved]
  - Band sensation [Unknown]
  - Immunodeficiency [Unknown]
  - Blindness [Recovered/Resolved]

NARRATIVE: CASE EVENT DATE: 201901
